FAERS Safety Report 12893940 (Version 4)
Quarter: 2016Q4

REPORT INFORMATION
  Report Type: Report from Study
  Country: GB (occurrence: GB)
  Receive Date: 20161028
  Receipt Date: 20161207
  Transmission Date: 20170207
  Serious: Yes (Other)
  Sender: FDA-Public Use
  Company Number: GB-JNJFOC-20161023885

PATIENT
  Sex: Male

DRUGS (1)
  1. SIMPONI [Suspect]
     Active Substance: GOLIMUMAB
     Indication: PRODUCT USED FOR UNKNOWN INDICATION
     Route: 058

REACTIONS (4)
  - Nephrolithiasis [Unknown]
  - Malaise [Unknown]
  - Renal cyst [Unknown]
  - Lower respiratory tract infection [Recovering/Resolving]

NARRATIVE: CASE EVENT DATE: 2016
